FAERS Safety Report 6773863-2 (Version None)
Quarter: 2010Q2

REPORT INFORMATION
  Report Type: 
  Country: None (occurrence: None)
  Receive Date: 20100617
  Receipt Date: 20100608
  Transmission Date: 20101027
  Serious: No
  Sender: FDA-Public Use
  Company Number: US-BIOGENIDEC-2010BI018908

PATIENT
  Sex: Male

DRUGS (3)
  1. AVONEX [Suspect]
     Indication: MULTIPLE SCLEROSIS
     Route: 030
     Dates: start: 20060101
  2. IV ANTIBIOTICS (NOS) [Concomitant]
     Indication: CYSTITIS
     Route: 042
  3. TERAZOSIN HCL [Concomitant]
     Indication: DRUG USE FOR UNKNOWN INDICATION

REACTIONS (5)
  - BLADDER DISORDER [None]
  - DEPRESSION [None]
  - FACIAL PAIN [None]
  - GASTROINTESTINAL DISORDER [None]
  - TREMOR [None]
